FAERS Safety Report 17823766 (Version 2)
Quarter: 2020Q3

REPORT INFORMATION
  Report Type: Spontaneous
  Country: US (occurrence: US)
  Receive Date: 20200526
  Receipt Date: 20200701
  Transmission Date: 20201102
  Serious: Yes (Other)
  Sender: FDA-Public Use
  Company Number: US-PFIZER INC-2020204724

PATIENT
  Age: 71 Year
  Sex: Female

DRUGS (1)
  1. PREMARIN [Suspect]
     Active Substance: ESTROGENS, CONJUGATED
     Dosage: UNK

REACTIONS (7)
  - Fatigue [Unknown]
  - Malaise [Unknown]
  - Irritability [Unknown]
  - Speech disorder [Unknown]
  - Hot flush [Unknown]
  - Cerebrovascular accident [Unknown]
  - Poor quality sleep [Unknown]
